FAERS Safety Report 10720206 (Version 1)
Quarter: 2015Q1

REPORT INFORMATION
  Report Type: Spontaneous
  Country: US (occurrence: US)
  Receive Date: 20150119
  Receipt Date: 20150119
  Transmission Date: 20150721
  Serious: No
  Sender: FDA-Public Use
  Company Number: US-UNITED THERAPEUTICS-UNT-2014-007224

PATIENT
  Age: 55 Year
  Sex: Female
  Weight: 79.37 kg

DRUGS (2)
  1. ADCIRCA [Concomitant]
     Active Substance: TADALAFIL
     Indication: PRODUCT USED FOR UNKNOWN INDICATION
  2. REMODULIN [Suspect]
     Active Substance: TREPROSTINIL
     Indication: PULMONARY ARTERIAL HYPERTENSION
     Dosage: 0.0175 ?G/KG/MIN, CONTINUING
     Route: 058
     Dates: start: 20140819

REACTIONS (8)
  - Device dislocation [Unknown]
  - Headache [Unknown]
  - Diarrhoea [Unknown]
  - Infusion site erythema [Unknown]
  - Drug dose omission [Unknown]
  - Nausea [Unknown]
  - Infusion site pain [Unknown]
  - Vomiting [Unknown]

NARRATIVE: CASE EVENT DATE: 2014
